FAERS Safety Report 16845793 (Version 3)
Quarter: 2021Q1

REPORT INFORMATION
  Report Type: Spontaneous
  Country: US (occurrence: US)
  Receive Date: 20190924
  Receipt Date: 20210318
  Transmission Date: 20210419
  Serious: Yes (Other)
  Sender: FDA-Public Use
  Company Number: US-GILEAD-2019-0429583

PATIENT
  Age: 57 Year
  Sex: Female
  Weight: 58.96 kg

DRUGS (33)
  1. VIREAD [Suspect]
     Active Substance: TENOFOVIR DISOPROXIL FUMARATE
     Dosage: UNK
     Route: 048
     Dates: start: 2003, end: 2005
  2. REYATAZ [Concomitant]
     Active Substance: ATAZANAVIR SULFATE
     Indication: HIV INFECTION
     Dosage: UNK
     Dates: start: 201308, end: 201411
  3. TRIUMEQ [Concomitant]
     Active Substance: ABACAVIR SULFATE\DOLUTEGRAVIR SODIUM\LAMIVUDINE
     Indication: HIV INFECTION
     Dosage: UNK
     Dates: start: 201705
  4. FLUCONAZOLE. [Concomitant]
     Active Substance: FLUCONAZOLE
     Indication: FUNGAL INFECTION
     Dosage: UNK
     Dates: start: 2009
  5. BARACLUDE [Concomitant]
     Active Substance: ENTECAVIR
     Indication: INFLUENZA
     Dosage: UNK
     Dates: start: 201305, end: 201306
  6. ZERIT [Concomitant]
     Active Substance: STAVUDINE
     Indication: HIV INFECTION
     Dosage: UNK
     Dates: start: 200907, end: 201001
  7. CRESTOR [Concomitant]
     Active Substance: ROSUVASTATIN CALCIUM
     Indication: BLOOD CHOLESTEROL
     Dosage: UNK
     Dates: start: 201810
  8. ONDANSETRON [Concomitant]
     Active Substance: ONDANSETRON
     Indication: NAUSEA
     Dosage: UNK
     Dates: start: 201301, end: 201302
  9. KALETRA [Concomitant]
     Active Substance: LOPINAVIR\RITONAVIR
     Indication: HIV INFECTION
     Dosage: UNK
     Dates: start: 200907, end: 201002
  10. ATORVASTATIN [Concomitant]
     Active Substance: ATORVASTATIN
     Indication: BLOOD CHOLESTEROL
     Dosage: UNK
     Dates: start: 201201, end: 201205
  11. METHOTREXATE. [Concomitant]
     Active Substance: METHOTREXATE
     Indication: ARTHRITIS
     Dosage: UNK
     Dates: start: 201603, end: 201908
  12. PREDNISONE. [Concomitant]
     Active Substance: PREDNISONE
     Indication: SYSTEMIC LUPUS ERYTHEMATOSUS
     Dosage: UNK
     Dates: start: 200907, end: 201807
  13. TRUVADA [Suspect]
     Active Substance: EMTRICITABINE\TENOFOVIR DISOPROXIL FUMARATE
     Indication: HIV INFECTION
     Dosage: UNK
     Route: 048
     Dates: start: 2001
  14. STRIBILD [Suspect]
     Active Substance: COBICISTAT\ELVITEGRAVIR\EMTRICITABINE\TENOFOVIR DISOPROXIL FUMARATE
     Indication: HIV INFECTION
     Dosage: UNK
     Route: 048
     Dates: start: 20141124, end: 20160302
  15. ZIAGEN [Concomitant]
     Active Substance: ABACAVIR SULFATE
     Indication: HIV INFECTION
     Dosage: UNK
     Dates: start: 201410, end: 201704
  16. MINOCYCLINE [Concomitant]
     Active Substance: MINOCYCLINE HYDROCHLORIDE
     Indication: ANTIBIOTIC THERAPY
     Dosage: UNK
     Dates: start: 201304, end: 201306
  17. BUPROPION. [Concomitant]
     Active Substance: BUPROPION
     Indication: DEPRESSION
     Dosage: UNK
     Dates: start: 201310, end: 201406
  18. LIPITOR [Concomitant]
     Active Substance: ATORVASTATIN CALCIUM
     Indication: BLOOD CHOLESTEROL
     Dosage: UNK
     Dates: start: 201110, end: 201201
  19. NORVIR [Concomitant]
     Active Substance: RITONAVIR
     Indication: HIV INFECTION
     Dosage: UNK
     Dates: start: 201003, end: 201411
  20. OSELTAMIVIR PHOSPHATE. [Concomitant]
     Active Substance: OSELTAMIVIR PHOSPHATE
     Indication: BLOOD CALCIUM
     Dosage: UNK
     Dates: start: 201901, end: 201901
  21. XELJANZ [Concomitant]
     Active Substance: TOFACITINIB CITRATE
     Indication: OSTEOARTHRITIS
  22. VEMLIDY [Concomitant]
     Active Substance: TENOFOVIR ALAFENAMIDE FUMARATE
     Indication: HEPATITIS B
     Dosage: UNK
     Dates: start: 201707
  23. VIREAD [Suspect]
     Active Substance: TENOFOVIR DISOPROXIL FUMARATE
     Indication: HIV INFECTION
     Dosage: UNK
     Route: 048
     Dates: start: 2001
  24. GENVOYA [Concomitant]
     Active Substance: COBICISTAT\ELVITEGRAVIR\EMTRICITABINE\TENOFOVIR ALAFENAMIDE FUMARATE
     Indication: HIV INFECTION
     Dosage: UNK
     Dates: start: 201606, end: 201705
  25. FOLIC ACID. [Concomitant]
     Active Substance: FOLIC ACID
     Dosage: UNK
     Dates: start: 201710
  26. MYCOPHENOLATE [Concomitant]
     Active Substance: MYCOPHENOLIC ACID
     Indication: ARTHRITIS
     Dosage: UNK
     Dates: start: 201312, end: 201403
  27. TRUVADA [Suspect]
     Active Substance: EMTRICITABINE\TENOFOVIR DISOPROXIL FUMARATE
     Dosage: UNK
     Route: 048
     Dates: start: 2005, end: 20141106
  28. ISENTRESS [Concomitant]
     Active Substance: RALTEGRAVIR POTASSIUM
     Indication: HIV INFECTION
     Dosage: UNK
     Dates: start: 201005, end: 2010
  29. PREZISTA [Concomitant]
     Active Substance: DARUNAVIR ETHANOLATE
     Indication: HIV INFECTION
     Dosage: UNK
     Dates: start: 201003, end: 201307
  30. NEXIUM I.V. [Concomitant]
     Active Substance: ESOMEPRAZOLE SODIUM
     Indication: DYSPEPSIA
     Dosage: UNK
     Dates: start: 201005
  31. OXYCODONE [Concomitant]
     Active Substance: OXYCODONE
     Indication: BONE PAIN
     Dosage: UNK
     Dates: start: 201401, end: 201401
  32. XELJANZ [Concomitant]
     Active Substance: TOFACITINIB CITRATE
     Indication: RHEUMATOID ARTHRITIS
     Dosage: UNK
     Dates: start: 201904
  33. HYDROXYCHLOROQUINE [Concomitant]
     Active Substance: HYDROXYCHLOROQUINE
     Indication: SYSTEMIC LUPUS ERYTHEMATOSUS
     Dosage: UNK
     Dates: start: 200907

REACTIONS (14)
  - Hallucination [Unknown]
  - Loss of personal independence in daily activities [Not Recovered/Not Resolved]
  - Wheelchair user [Not Recovered/Not Resolved]
  - Emotional distress [Not Recovered/Not Resolved]
  - Anhedonia [Not Recovered/Not Resolved]
  - Osteoporosis [Not Recovered/Not Resolved]
  - Anxiety [Not Recovered/Not Resolved]
  - Economic problem [Not Recovered/Not Resolved]
  - Pain [Not Recovered/Not Resolved]
  - Depression [Not Recovered/Not Resolved]
  - Walking aid user [Not Recovered/Not Resolved]
  - Multiple fractures [Not Recovered/Not Resolved]
  - Osteopenia [Not Recovered/Not Resolved]
  - Diarrhoea [Unknown]

NARRATIVE: CASE EVENT DATE: 2002
